FAERS Safety Report 7361883-9 (Version None)
Quarter: 2011Q1

REPORT INFORMATION
  Report Type: 
  Country: None (occurrence: None)
  Receive Date: 20110318
  Receipt Date: 20110314
  Transmission Date: 20110831
  Serious: Yes (Other)
  Sender: FDA-Public Use
  Company Number: FR-PFIZER INC-2011055773

PATIENT

DRUGS (4)
  1. LAMOTRIGINE [Suspect]
  2. TOPIRAMATE [Suspect]
     Dosage: 200 MG, 1X/DAY
  3. ETHOSUXIMIDE [Suspect]
     Indication: GRAND MAL CONVULSION
  4. PHENOBARBITAL [Suspect]

REACTIONS (2)
  - GRAND MAL CONVULSION [None]
  - DRUG INEFFECTIVE [None]
